FAERS Safety Report 7119840-3 (Version None)
Quarter: 2010Q4

REPORT INFORMATION
  Report Type: 
  Country: None (occurrence: None)
  Receive Date: 20101123
  Receipt Date: 20100907
  Transmission Date: 20110411
  Serious: No
  Sender: FDA-Public Use
  Company Number: US-BRISTOL-MYERS SQUIBB COMPANY-15275258

PATIENT
  Age: 72 Year
  Sex: Female
  Weight: 63 kg

DRUGS (3)
  1. ONGLYZA [Suspect]
     Dosage: STARTED AT 11 OR 12 DAYS AGO,IN EVENINGS
     Dates: start: 20100801
  2. GLYBURIDE AND METFORMIN HYDROCHLORIDE [Concomitant]
  3. ACTOS [Concomitant]

REACTIONS (3)
  - BLOOD GLUCOSE FLUCTUATION [None]
  - OEDEMA PERIPHERAL [None]
  - WEIGHT INCREASED [None]
